FAERS Safety Report 4518626-3 (Version None)
Quarter: 2004Q4

REPORT INFORMATION
  Report Type: 
  Country: None (occurrence: None)
  Receive Date: 20041104
  Receipt Date: 20040506
  Transmission Date: 20050328
  Serious: Yes (Other)
  Sender: FDA-Public Use
  Company Number: DSA_24377_2004

PATIENT
  Age: 54 Year
  Sex: Female
  Weight: 7.2576 kg

DRUGS (4)
  1. ATIVAN [Suspect]
     Indication: INSOMNIA
     Dosage: 1 MG Q DAY PO
     Route: 048
     Dates: start: 20031001, end: 20040425
  2. ATIVAN [Suspect]
     Indication: INSOMNIA
     Dosage: 0.5 MG QOD PO
     Route: 048
     Dates: start: 20040426, end: 20040430
  3. DILANTIN [Concomitant]
  4. SYNTHROID [Concomitant]

REACTIONS (3)
  - CONVULSION [None]
  - DRUG INEFFECTIVE FOR UNAPPROVED INDICATION [None]
  - INSOMNIA [None]
